FAERS Safety Report 10050887 (Version 1)
Quarter: 2014Q2

REPORT INFORMATION
  Report Type: Spontaneous
  Country: AR (occurrence: AR)
  Receive Date: 20140401
  Receipt Date: 20140401
  Transmission Date: 20141212
  Serious: Yes (Hospitalization, Other)
  Sender: FDA-Public Use
  Company Number: AR-AMGEN-ARGSP2014022489

PATIENT
  Age: 45 Year
  Sex: Female

DRUGS (2)
  1. ENBREL [Suspect]
     Indication: RHEUMATOID ARTHRITIS
     Dosage: 50 MG, WEEKLY
     Route: 065
     Dates: start: 20130503
  2. MEPREDNISONE [Concomitant]
     Dosage: 8 MG, 1X/DAY

REACTIONS (3)
  - Cholelithiasis [Recovering/Resolving]
  - Osteonecrosis [Recovered/Resolved]
  - Anaemia [Recovering/Resolving]
